FAERS Safety Report 4357197-1 (Version None)
Quarter: 2004Q2

REPORT INFORMATION
  Report Type: 
  Country: None (occurrence: None)
  Receive Date: 20040507
  Receipt Date: 20040426
  Transmission Date: 20050107
  Serious: Yes (Death, Life-Threatening, Other)
  Sender: FDA-Public Use
  Company Number: 2004028956

PATIENT
  Age: 48 Year
  Sex: Male

DRUGS (1)
  1. PROCARDIA [Suspect]
     Indication: HYPERTENSIVE CRISIS
     Dosage: 10 MG (1), ORAL
     Route: 048
     Dates: start: 20010101, end: 20010101

REACTIONS (1)
  - CARDIAC ARREST [None]
